FAERS Safety Report 23554076 (Version 1)
Quarter: 2024Q1

REPORT INFORMATION
  Report Type: Spontaneous
  Country: FR (occurrence: FR)
  Receive Date: 20240222
  Receipt Date: 20240222
  Transmission Date: 20240410
  Serious: Yes (Hospitalization)
  Sender: FDA-Public Use
  Company Number: None

PATIENT
  Age: 6 Day
  Sex: Male
  Weight: 2.665 kg

DRUGS (5)
  1. FLUOXETINE HYDROCHLORIDE [Suspect]
     Active Substance: FLUOXETINE HYDROCHLORIDE
     Indication: Anxiety
     Dosage: CHLORHYDRATE DE FLUOXETINE
     Route: 064
     Dates: start: 20230310, end: 20231116
  2. RHOPHYLAC [Concomitant]
     Active Substance: HUMAN RHO(D) IMMUNE GLOBULIN
     Indication: Product used for unknown indication
  3. LAMICTAL [Suspect]
     Active Substance: LAMOTRIGINE
     Indication: Product used for unknown indication
     Route: 064
     Dates: start: 20230310, end: 20231116
  4. PRAZEPAM [Concomitant]
     Active Substance: PRAZEPAM
     Indication: Anxiety
     Route: 064
     Dates: start: 20230310, end: 20231116
  5. OXAZEPAM [Concomitant]
     Active Substance: OXAZEPAM
     Indication: Anxiety
     Route: 064
     Dates: start: 20230310, end: 20231116

REACTIONS (2)
  - Thrombocytopenia [Unknown]
  - Cerebral microhaemorrhage [Recovered/Resolved]

NARRATIVE: CASE EVENT DATE: 20231116
